FAERS Safety Report 22072779 (Version 1)
Quarter: 2023Q1

REPORT INFORMATION
  Report Type: Spontaneous
  Country: US (occurrence: US)
  Receive Date: 20230308
  Receipt Date: 20230308
  Transmission Date: 20230417
  Serious: No
  Sender: FDA-Public Use
  Company Number: US-GLENMARK PHARMACEUTICALS-2022GMK074874

PATIENT

DRUGS (1)
  1. ZONISAMIDE [Suspect]
     Active Substance: ZONISAMIDE
     Indication: Neuropathy peripheral
     Dosage: 1 DOSAGE FORM, BID
     Route: 048
     Dates: start: 20220711

REACTIONS (5)
  - Pain in extremity [Recovered/Resolved]
  - Product use in unapproved indication [Unknown]
  - Recalled product administered [Unknown]
  - Arthralgia [Recovered/Resolved]
  - Rash [Recovered/Resolved]
